FAERS Safety Report 9820706 (Version 2)
Quarter: 2014Q1

REPORT INFORMATION
  Report Type: Spontaneous
  Country: US (occurrence: US)
  Receive Date: 20140116
  Receipt Date: 20140306
  Transmission Date: 20141002
  Serious: Yes (Hospitalization)
  Sender: FDA-Public Use
  Company Number: US-ALLERGAN-1400198US

PATIENT
  Age: 78 Year
  Sex: Male

DRUGS (12)
  1. PRED FORTE [Suspect]
     Indication: CORNEAL TRANSPLANT
     Dosage: 2 GTT, BID
     Route: 047
  2. OCUFLOX [Concomitant]
     Indication: CORNEAL TRANSPLANT
     Dosage: 1 GTT, QID
     Route: 047
  3. OCUFLOX [Concomitant]
     Dosage: 1 GTT, UNK 6 TIMES DAILY
     Route: 047
  4. COMBIGAN[R] [Concomitant]
     Indication: GLAUCOMA
     Dosage: 1 GTT, QD
     Route: 047
  5. TRAVATAN [Concomitant]
     Indication: GLAUCOMA
     Dosage: 1 GTT, QD
     Route: 047
  6. OASIS [Concomitant]
     Indication: DRY EYE
     Dosage: 1 GTT, QID
     Route: 047
  7. OASIS [Concomitant]
     Dosage: 1 GTT, UNK 6 TIMES DAILY
     Route: 047
  8. PROLENSA [Concomitant]
     Indication: PRODUCT USED FOR UNKNOWN INDICATION
     Dosage: 1 GTT, QD
     Route: 047
     Dates: start: 201301
  9. VITAMIN D [Concomitant]
     Indication: SUPPLEMENTATION THERAPY
     Dosage: UNK
     Route: 048
     Dates: start: 1990
  10. FOLIC ACID [Concomitant]
     Indication: SUPPLEMENTATION THERAPY
     Dosage: UNK
     Route: 048
     Dates: start: 1990
  11. VALTREX [Concomitant]
     Indication: HERPES VIRUS INFECTION
     Dosage: UNK
     Route: 048
     Dates: start: 1990
  12. SIX OTHER MEDICATIONS NOS [Concomitant]
     Indication: PRODUCT USED FOR UNKNOWN INDICATION
     Dosage: UNK
     Dates: start: 1990

REACTIONS (3)
  - Gastrointestinal gangrene [Unknown]
  - Pulmonary mass [Unknown]
  - Gallbladder disorder [Unknown]
